FAERS Safety Report 13530666 (Version 5)
Quarter: 2017Q2

REPORT INFORMATION
  Report Type: Report from Study
  Country: US (occurrence: US)
  Receive Date: 20170510
  Receipt Date: 20170620
  Transmission Date: 20170830
  Serious: Yes (Other)
  Sender: FDA-Public Use
  Company Number: US-AMGEN-USASL2017070193

PATIENT
  Age: 57 Year
  Sex: Male

DRUGS (1)
  1. ENBREL [Suspect]
     Active Substance: ETANERCEPT
     Indication: ANKYLOSING SPONDYLITIS
     Dosage: 50 MG, QWK
     Route: 065

REACTIONS (7)
  - Porphyria [Unknown]
  - Enzyme level decreased [Unknown]
  - Drug dose omission [Unknown]
  - Abasia [Unknown]
  - Ligament disorder [Unknown]
  - Ankylosing spondylitis [Unknown]
  - Pain [Unknown]

NARRATIVE: CASE EVENT DATE: 2017
